FAERS Safety Report 10295010 (Version 2)
Quarter: 2014Q3

REPORT INFORMATION
  Report Type: Spontaneous
  Country: US (occurrence: US)
  Receive Date: 20140710
  Receipt Date: 20140710
  Transmission Date: 20150326
  Serious: No
  Sender: FDA-Public Use
  Company Number: US-PURDUE-USA-2014-0112149

PATIENT
  Sex: Female

DRUGS (1)
  1. BUTRANS [Suspect]
     Active Substance: BUPRENORPHINE
     Indication: PAIN
     Dosage: 5 MCG/HR, WEEKLY
     Route: 062
     Dates: start: 201308

REACTIONS (11)
  - Drug withdrawal syndrome [Recovered/Resolved]
  - Application site scab [Unknown]
  - Application site bruise [Not Recovered/Not Resolved]
  - Application site pruritus [Not Recovered/Not Resolved]
  - Diarrhoea [Unknown]
  - Application site erosion [Unknown]
  - Application site pain [Not Recovered/Not Resolved]
  - Application site discharge [Unknown]
  - Application site discolouration [Unknown]
  - Application site vesicles [Not Recovered/Not Resolved]
  - Nausea [Unknown]

NARRATIVE: CASE EVENT DATE: 201403
